FAERS Safety Report 6015010-0 (Version None)
Quarter: 2008Q4

REPORT INFORMATION
  Report Type: 
  Country: None (occurrence: None)
  Receive Date: 20081208
  Receipt Date: 20081124
  Transmission Date: 20090506
  Serious: Yes (Hospitalization)
  Sender: FDA-Public Use
  Company Number: AEUSA200800269

PATIENT
  Age: 30 Year
  Sex: Female

DRUGS (17)
  1. GAMUNEX [Suspect]
     Indication: IMMUNODEFICIENCY COMMON VARIABLE
     Dosage: 10 GM; QW; IV
     Route: 042
     Dates: start: 20080917
  2. FENTANYL-100 [Concomitant]
  3. PROMETHAZINE [Concomitant]
  4. ZOLPIDEM [Concomitant]
  5. MILK OF MAGNESIA [Concomitant]
  6. PANTOPRAZOLE [Concomitant]
  7. DIPHENHYDRAMINE HCL [Concomitant]
  8. HEPARIN [Concomitant]
  9. MOTOPROLOL [Concomitant]
  10. CLONAZEPAM [Concomitant]
  11. HYDROMORPHONE [Concomitant]
  12. LOVENOX [Concomitant]
  13. KLONOPIN [Concomitant]
  14. COUMADIN /00627701/ [Concomitant]
  15. TYLENOL (CAPLET) [Concomitant]
  16. DILAUDID [Concomitant]
  17. ATARAX /00595201/ [Concomitant]

REACTIONS (9)
  - ASTHENIA [None]
  - BORDETELLA INFECTION [None]
  - CATHETER RELATED COMPLICATION [None]
  - CATHETER SITE PAIN [None]
  - INCREASED APPETITE [None]
  - NAUSEA [None]
  - SEPSIS [None]
  - SINUS HEADACHE [None]
  - VOMITING [None]
